FAERS Safety Report 22096857 (Version 1)
Quarter: 2023Q1

REPORT INFORMATION
  Report Type: Report from Study
  Country: BR (occurrence: BR)
  Receive Date: 20230315
  Receipt Date: 20230315
  Transmission Date: 20230418
  Serious: Yes (Other)
  Sender: FDA-Public Use
  Company Number: BR-JNJFOC-20230323280

PATIENT
  Age: 78 Year
  Sex: Male

DRUGS (4)
  1. SIMPONI [Suspect]
     Active Substance: GOLIMUMAB
     Indication: Ankylosing spondylitis
     Route: 058
     Dates: start: 20171025
  2. SIMPONI [Suspect]
     Active Substance: GOLIMUMAB
  3. NAPROXEN [Concomitant]
     Active Substance: NAPROXEN
  4. LOSARTAN POTASSIUM [Concomitant]
     Active Substance: LOSARTAN POTASSIUM
     Indication: Hypertension

REACTIONS (2)
  - Neoplasm prostate [Unknown]
  - Pain [Unknown]

NARRATIVE: CASE EVENT DATE: 20230101
